FAERS Safety Report 7375933-7 (Version None)
Quarter: 2011Q1

REPORT INFORMATION
  Report Type: 
  Country: None (occurrence: None)
  Receive Date: 20110315
  Receipt Date: 20110308
  Transmission Date: 20110831
  Serious: Yes (Life-Threatening, Hospitalization, Disabling, Other)
  Sender: FDA-Public Use
  Company Number: 2010SP036928

PATIENT
  Age: 27 Year
  Sex: Female
  Weight: 104.3273 kg

DRUGS (2)
  1. NUVARING [Suspect]
     Indication: CONTRACEPTION
     Dates: start: 20070301, end: 20080415
  2. METFORMIN [Concomitant]

REACTIONS (36)
  - DEHYDRATION [None]
  - ISCHAEMIC STROKE [None]
  - HAEMORRHAGIC TRANSFORMATION STROKE [None]
  - SUPERIOR SAGITTAL SINUS THROMBOSIS [None]
  - PLEURAL EFFUSION [None]
  - CEREBRAL VENOUS THROMBOSIS [None]
  - FOOT FRACTURE [None]
  - ENCEPHALOMALACIA [None]
  - CEREBROVASCULAR ACCIDENT [None]
  - APHASIA [None]
  - LIVER FUNCTION TEST ABNORMAL [None]
  - HYDROCEPHALUS [None]
  - HEADACHE [None]
  - LOSS OF CONSCIOUSNESS [None]
  - INTRACRANIAL VENOUS SINUS THROMBOSIS [None]
  - PNEUMONIA [None]
  - PARTIAL SEIZURES [None]
  - TRANSVERSE SINUS THROMBOSIS [None]
  - LOBAR PNEUMONIA [None]
  - INTRACRANIAL PRESSURE INCREASED [None]
  - VOMITING [None]
  - SUBARACHNOID HAEMORRHAGE [None]
  - CEREBRAL INFARCTION [None]
  - SINUSITIS [None]
  - ABASIA [None]
  - HYPERTENSION [None]
  - ATTENTION DEFICIT/HYPERACTIVITY DISORDER [None]
  - IMPAIRED WORK ABILITY [None]
  - MIGRAINE [None]
  - ATELECTASIS [None]
  - FOOD INTOLERANCE [None]
  - CONFUSIONAL STATE [None]
  - PAPILLOEDEMA [None]
  - ABDOMINAL PAIN [None]
  - COAGULOPATHY [None]
  - SUBDURAL HAEMATOMA [None]
